FAERS Safety Report 5252769-4 (Version None)
Quarter: 2007Q1

REPORT INFORMATION
  Report Type: 
  Country: None (occurrence: None)
  Receive Date: 20070301
  Receipt Date: 20061129
  Transmission Date: 20070707
  Serious: No
  Sender: FDA-Public Use
  Company Number: US-GLAXOSMITHKLINE-A0629450A

PATIENT
  Age: 62 Year
  Sex: Female

DRUGS (3)
  1. LAMICTAL [Suspect]
     Dosage: 350MG PER DAY
     Route: 048
     Dates: start: 20060501
  2. NEXIUM [Concomitant]
  3. XANAX [Concomitant]

REACTIONS (1)
  - RASH [None]
